FAERS Safety Report 24698158 (Version 1)
Quarter: 2024Q4

REPORT INFORMATION
  Report Type: Spontaneous
  Country: SE (occurrence: SE)
  Receive Date: 20241204
  Receipt Date: 20241204
  Transmission Date: 20250115
  Serious: Yes (Other)
  Sender: SANDOZ
  Company Number: SE-SANDOZ-SDZ2024SE090122

PATIENT
  Sex: Female

DRUGS (2)
  1. HYRIMOZ [Suspect]
     Active Substance: ADALIMUMAB-ADAZ
     Indication: Injury
     Dosage: HYRIMOZ SOLUTION FOR INJECTION IN PRE-FILLED SYRINGE
     Route: 065
  2. HYRIMOZ [Suspect]
     Active Substance: ADALIMUMAB-ADAZ
     Indication: Rheumatoid arthritis

REACTIONS (4)
  - Skin malformation [Unknown]
  - Skin injury [Unknown]
  - Paraesthesia [Unknown]
  - Product use in unapproved indication [Unknown]
